FAERS Safety Report 5144611-7 (Version None)
Quarter: 2006Q4

REPORT INFORMATION
  Report Type: 
  Country: None (occurrence: None)
  Receive Date: 20061106
  Receipt Date: 20050408
  Transmission Date: 20070319
  Serious: Yes (Hospitalization)
  Sender: FDA-Public Use
  Company Number: US-MERCK-0604USA02243

PATIENT
  Age: 57 Year
  Sex: Male
  Weight: 91 kg

DRUGS (11)
  1. ZOCOR [Suspect]
     Route: 048
     Dates: start: 19980101
  2. ZOCOR [Suspect]
     Route: 048
     Dates: start: 20010628
  3. ZOCOR [Suspect]
     Route: 048
     Dates: start: 20020605
  4. ZOCOR [Suspect]
     Route: 048
     Dates: end: 20040301
  5. ASPIRIN [Concomitant]
     Route: 048
  6. LOPRESSOR [Concomitant]
     Route: 048
  7. VASOTEC [Concomitant]
     Route: 048
  8. ISORDIL [Concomitant]
     Route: 048
  9. NITROGLYCERIN [Concomitant]
     Route: 060
  10. ATENOLOL [Concomitant]
     Route: 065
  11. PLAVIX [Concomitant]
     Route: 065

REACTIONS (8)
  - ANAEMIA [None]
  - CHEST PAIN [None]
  - PAIN IN EXTREMITY [None]
  - RENAL FAILURE ACUTE [None]
  - RHABDOMYOLYSIS [None]
  - UPPER RESPIRATORY TRACT INFECTION [None]
  - URINARY TRACT INFECTION [None]
  - VOCAL CORD PARALYSIS [None]
